FAERS Safety Report 15473539 (Version 1)
Quarter: 2018Q4

REPORT INFORMATION
  Report Type: Report from Study
  Country: US (occurrence: US)
  Receive Date: 20181008
  Receipt Date: 20181008
  Transmission Date: 20190205
  Serious: Yes (Other)
  Sender: FDA-Public Use
  Company Number: US-BAYER-2018-182853

PATIENT
  Age: 51 Year
  Sex: Male

DRUGS (7)
  1. METFORMIN HYDROCHLORIDE. [Concomitant]
     Active Substance: METFORMIN HYDROCHLORIDE
  2. LISINOPRIL. [Concomitant]
     Active Substance: LISINOPRIL
  3. LANTUS [Concomitant]
     Active Substance: INSULIN GLARGINE
  4. ALLOPURINOL. [Concomitant]
     Active Substance: ALLOPURINOL
  5. STIVARGA [Suspect]
     Active Substance: REGORAFENIB
     Indication: COLORECTAL CANCER METASTATIC
     Dosage: 80 -120 MG USE AS DIRECTED
     Dates: start: 20180902, end: 20180910
  6. VITAMIN B12 [Concomitant]
     Active Substance: CYANOCOBALAMIN
  7. GLIPIZIDE. [Concomitant]
     Active Substance: GLIPIZIDE

REACTIONS (5)
  - Dysphagia [Recovered/Resolved]
  - Dehydration [Recovered/Resolved]
  - Pharyngeal abscess [Recovered/Resolved]
  - Oropharyngeal pain [Recovered/Resolved]
  - Bronchitis [Recovered/Resolved]

NARRATIVE: CASE EVENT DATE: 20180909
